FAERS Safety Report 12697465 (Version 1)
Quarter: 2016Q3

REPORT INFORMATION
  Report Type: Spontaneous
  Country: US (occurrence: US)
  Receive Date: 20160830
  Receipt Date: 20160830
  Transmission Date: 20161109
  Serious: No
  Sender: FDA-Public Use
  Company Number: US-PFIZER INC-2016403281

PATIENT
  Age: 64 Year
  Sex: Female

DRUGS (6)
  1. LEVOTHYROXINE SODIUM. [Concomitant]
     Active Substance: LEVOTHYROXINE SODIUM
  2. HYDROCODONE BITARTRATE AND ACETAMINOPHEN [Concomitant]
     Active Substance: ACETAMINOPHEN\HYDROCODONE BITARTRATE
  3. FEMARA [Concomitant]
     Active Substance: LETROZOLE
  4. HYDROMORPHONE HCL [Concomitant]
     Active Substance: HYDROMORPHONE HYDROCHLORIDE
  5. IBRANCE [Suspect]
     Active Substance: PALBOCICLIB
     Indication: NEOPLASM MALIGNANT
     Dosage: 100 MG, CYCLIC (TAKE 1 CAPSULE BY MOUTH DAILY ON DAYS 1-21 AND REPEAT EVERY 28 DAYS)
     Route: 048
  6. CALCIUM 600 + D3 PLUS MINERALS [Concomitant]

REACTIONS (1)
  - Drug ineffective for unapproved indication [Unknown]
